FAERS Safety Report 21069480 (Version 2)
Quarter: 2022Q3

REPORT INFORMATION
  Report Type: Spontaneous
  Country: NZ (occurrence: NZ)
  Receive Date: 20220712
  Receipt Date: 20220725
  Transmission Date: 20221026
  Serious: Yes (Other)
  Sender: FDA-Public Use
  Company Number: NZ-PFIZER INC-202200916285

PATIENT
  Age: 42 Year
  Sex: Male

DRUGS (4)
  1. EPINEPHRINE [Suspect]
     Active Substance: EPINEPHRINE
     Indication: Anaphylactic reaction
     Dosage: 0.5 MG
     Route: 030
  2. ALBUTEROL [Suspect]
     Active Substance: ALBUTEROL
     Indication: Anaphylactic reaction
     Dosage: 5 MG
  3. LORATADINE [Suspect]
     Active Substance: LORATADINE
     Indication: Anaphylactic reaction
     Dosage: 10 MG
     Route: 048
  4. HYDROCORTISONE SODIUM SUCCINATE [Concomitant]
     Active Substance: HYDROCORTISONE SODIUM SUCCINATE
     Indication: Anaphylactic reaction
     Dosage: 100 MG
     Route: 042

REACTIONS (3)
  - Kounis syndrome [Unknown]
  - Stress cardiomyopathy [Unknown]
  - Crepitations [Unknown]
